FAERS Safety Report 21448554 (Version 4)
Quarter: 2023Q2

REPORT INFORMATION
  Report Type: Report from Study
  Country: US (occurrence: US)
  Receive Date: 20221013
  Receipt Date: 20230628
  Transmission Date: 20230721
  Serious: Yes (Other)
  Sender: FDA-Public Use
  Company Number: US-BIOGEN-2022BI01160730

PATIENT
  Age: 38 Year
  Sex: Female

DRUGS (38)
  1. VUMERITY [Suspect]
     Active Substance: DIROXIMEL FUMARATE
     Indication: Multiple sclerosis
     Dosage: STARTING DOSE
     Route: 050
     Dates: start: 202108
  2. VUMERITY [Suspect]
     Active Substance: DIROXIMEL FUMARATE
     Dosage: APR/MAY 2021
     Route: 050
     Dates: start: 2021
  3. VUMERITY [Suspect]
     Active Substance: DIROXIMEL FUMARATE
     Dosage: TAKE 2 CAPSULES BY MOUTH TWICE A DAY
     Route: 050
     Dates: start: 20230310
  4. BACLOFEN [Suspect]
     Active Substance: BACLOFEN
     Indication: Product used for unknown indication
     Route: 050
     Dates: start: 20230610, end: 202306
  5. GABAPENTIN [Concomitant]
     Active Substance: GABAPENTIN
     Indication: Product used for unknown indication
     Route: 050
  6. GABAPENTIN [Concomitant]
     Active Substance: GABAPENTIN
     Route: 050
     Dates: start: 20221201
  7. FISH OIL [Concomitant]
     Active Substance: FISH OIL
     Indication: Product used for unknown indication
     Route: 050
  8. VITAMIN B12 [Concomitant]
     Active Substance: CYANOCOBALAMIN
     Indication: Vitamin B12 deficiency
     Route: 050
  9. DULOXETINE [Concomitant]
     Active Substance: DULOXETINE
     Indication: Product used for unknown indication
     Route: 050
  10. DULOXETINE [Concomitant]
     Active Substance: DULOXETINE
     Dosage: QHS
     Route: 050
  11. VITAMIN C [Concomitant]
     Active Substance: ASCORBIC ACID
     Indication: Product used for unknown indication
     Route: 050
  12. VITAMIN D3 [Concomitant]
     Active Substance: CHOLECALCIFEROL
     Indication: Product used for unknown indication
     Route: 050
  13. CYANOCOBALAMIN [Concomitant]
     Active Substance: CYANOCOBALAMIN
     Indication: Product used for unknown indication
     Dosage: 1000MCG/ML VIAL, QWK FOR 4 WEEKS THEN ONCE MONTHLY
     Route: 050
     Dates: start: 20200123
  14. IBUPROFEN [Concomitant]
     Active Substance: IBUPROFEN
     Indication: Product used for unknown indication
     Dosage: QTY-30, RF-0?30 TABLETS
     Route: 050
  15. ACETAMINOPHEN\HYDROCODONE [Concomitant]
     Active Substance: ACETAMINOPHEN\HYDROCODONE
     Indication: Product used for unknown indication
     Dosage: 1 EACH TABLET, QTY- 8, RF-0?HYDROCODONE-5 MG, ACETAMINOPHEN-325 MG TABLET
     Route: 050
  16. HYDROCORTISONE [Concomitant]
     Active Substance: HYDROCORTISONE
     Indication: Product used for unknown indication
     Dosage: 30 APPL/30 GRAM CREAM, 1 APPLICABLE TOPICAL, QTY- 1, RF-0?2.5 % TROPICAL CREAM, 1 TUBE
     Route: 050
  17. OMEPRAZOLE [Concomitant]
     Active Substance: OMEPRAZOLE
     Indication: Product used for unknown indication
     Route: 050
  18. ACETAMINOPHEN\OXYCODONE HYDROCHLORIDE [Concomitant]
     Active Substance: ACETAMINOPHEN\OXYCODONE HYDROCHLORIDE
     Indication: Product used for unknown indication
     Dosage: 1 EACH TABLET, QTY- 8, RF-0?5-325 MG TABLET, 8 TABLETS
     Route: 050
  19. PROMETHAZINE [Concomitant]
     Active Substance: PROMETHAZINE HYDROCHLORIDE
     Indication: Product used for unknown indication
     Route: 050
  20. SULFAMETHOXAZOLE\TRIMETHOPRIM [Concomitant]
     Active Substance: SULFAMETHOXAZOLE\TRIMETHOPRIM
     Indication: Product used for unknown indication
     Route: 050
  21. TOPIRAMATE [Concomitant]
     Active Substance: TOPIRAMATE
     Indication: Product used for unknown indication
     Dosage: QHS
     Route: 050
  22. XANAX [Concomitant]
     Active Substance: ALPRAZOLAM
     Indication: Product used for unknown indication
     Route: 050
  23. AMBIEN [Concomitant]
     Active Substance: ZOLPIDEM TARTRATE
     Indication: Product used for unknown indication
     Route: 050
  24. ARIPIPRAZOLE [Concomitant]
     Active Substance: ARIPIPRAZOLE
     Indication: Product used for unknown indication
     Route: 050
  25. PROVIGIL [Concomitant]
     Active Substance: MODAFINIL
     Indication: Sleep apnoea syndrome
     Dosage: PRN
     Route: 050
  26. PROVIGIL [Concomitant]
     Active Substance: MODAFINIL
     Dosage: TAKE 1 TABLET BY MOUTH ONCE A DAY 1/2 TO 1 PO QAM
     Route: 050
     Dates: start: 20221206
  27. LORAZEPAM [Concomitant]
     Active Substance: LORAZEPAM
     Indication: Product used for unknown indication
     Dosage: AS NEEDED
     Route: 050
     Dates: start: 20200108
  28. ADVIL [Concomitant]
     Active Substance: IBUPROFEN
     Indication: Product used for unknown indication
     Dosage: AS NEEDED
     Route: 050
     Dates: start: 20200108
  29. CANNABIS SATIVA SEED OIL\HERBALS [Concomitant]
     Active Substance: CANNABIS SATIVA SEED OIL\HERBALS
     Indication: Product used for unknown indication
     Route: 050
     Dates: start: 20200108
  30. DICLOFENAC POTASSIUM [Concomitant]
     Active Substance: DICLOFENAC POTASSIUM
     Indication: Pain
     Dosage: AS NEEDED
     Route: 050
  31. RIZATRIPTAN [Concomitant]
     Active Substance: RIZATRIPTAN
     Indication: Migraine
     Dosage: 1 TABLET BY MOUTH AS DIRECTED, TAKE 1 TAB BY MOUTH AT THE ONSET OF MIGRAINE, MAY TAKE 1 ADDITIONA...
     Route: 050
     Dates: start: 20220629
  32. TRILEPTAL [Concomitant]
     Active Substance: OXCARBAZEPINE
     Indication: Product used for unknown indication
     Dosage: 150 MILLIGRAMS 2-3 TABLETS TWICE A DAY
     Route: 050
     Dates: start: 20220920
  33. TRILEPTAL [Concomitant]
     Active Substance: OXCARBAZEPINE
     Dosage: TAKE 2 TABLET BY MOUTH TWICE A DAY
     Route: 050
     Dates: start: 20230612
  34. PANTOPRAZOLE [Concomitant]
     Active Substance: PANTOPRAZOLE
     Indication: Product used for unknown indication
     Dosage: TAKE 2 TABLET BY MOUTH TWICE A DAY
     Route: 050
  35. OXYBUTYNIN CHLORIDE [Concomitant]
     Active Substance: OXYBUTYNIN CHLORIDE
     Indication: Product used for unknown indication
     Route: 050
     Dates: start: 20230322
  36. MEDROL [Concomitant]
     Active Substance: METHYLPREDNISOLONE
     Indication: Product used for unknown indication
     Dosage: TAKE MEDROL DOSE PAK ACCORDING TO PACKAGE DIRECTIONS
     Route: 050
  37. VALIUM [Concomitant]
     Active Substance: DIAZEPAM
     Indication: Sedative therapy
     Route: 050
     Dates: start: 20230612
  38. MODAFINIL [Concomitant]
     Active Substance: MODAFINIL
     Indication: Product used for unknown indication
     Dosage: TAKE 1/2TO 1 (ONE HALF TO ONE) TABLET BY MOUTH ONCE DAILY IN THE MORNING
     Route: 050
     Dates: start: 20230614

REACTIONS (10)
  - Generalised tonic-clonic seizure [Recovered/Resolved]
  - Tremor [Unknown]
  - Headache [Unknown]
  - Asthenia [Unknown]
  - Toothache [Unknown]
  - Somnolence [Unknown]
  - Fatigue [Unknown]
  - COVID-19 [Recovered/Resolved]
  - Eye pain [Unknown]
  - Vision blurred [Unknown]

NARRATIVE: CASE EVENT DATE: 20220901
